FAERS Safety Report 8076964-4 (Version None)
Quarter: 2012Q1

REPORT INFORMATION
  Report Type: 
  Country: None (occurrence: None)
  Receive Date: 20120127
  Receipt Date: 20120125
  Transmission Date: 20120608
  Serious: Yes (Hospitalization)
  Sender: FDA-Public Use
  Company Number: US-GLAXOSMITHKLINE-A0899045A

PATIENT
  Age: 51 Year
  Sex: Female

DRUGS (9)
  1. AVANDIA [Suspect]
     Indication: DIABETES MELLITUS
     Dosage: 4MG THREE TIMES PER DAY
     Route: 048
     Dates: start: 19990701, end: 20020501
  2. CELEBREX [Concomitant]
  3. LIPITOR [Concomitant]
  4. METOPROLOL SUCCINATE [Concomitant]
  5. PROCARDIA [Concomitant]
  6. XANAX [Concomitant]
  7. NEURONTIN [Concomitant]
  8. EFFEXOR [Concomitant]
  9. PRILOSEC [Concomitant]

REACTIONS (9)
  - MYOCARDIAL INFARCTION [None]
  - STENT PLACEMENT [None]
  - HEADACHE [None]
  - CARDIAC OPERATION [None]
  - WEIGHT INCREASED [None]
  - ANGIOPATHY [None]
  - CATHETERISATION CARDIAC [None]
  - CARDIOMEGALY [None]
  - VASOSPASM [None]
